FAERS Safety Report 5600092-8 (Version None)
Quarter: 2008Q1

REPORT INFORMATION
  Report Type: 
  Country: None (occurrence: None)
  Receive Date: 20080123
  Receipt Date: 20080117
  Transmission Date: 20080703
  Serious: Yes (Hospitalization)
  Sender: FDA-Public Use
  Company Number: A0703879A

PATIENT
  Age: 68 Year
  Sex: Male

DRUGS (2)
  1. AVANDIA [Suspect]
     Route: 048
  2. UNKNOWN [Concomitant]

REACTIONS (2)
  - CHEST PAIN [None]
  - MYOCARDIAL INFARCTION [None]
